FAERS Safety Report 17010986 (Version 1)
Quarter: 2019Q4

REPORT INFORMATION
  Report Type: Spontaneous
  Country: NL (occurrence: NL)
  Receive Date: 20191108
  Receipt Date: 20191108
  Transmission Date: 20200122
  Serious: Yes (Other)
  Sender: FDA-Public Use
  Company Number: NL-MYLANLABS-2019M1106544

PATIENT
  Sex: Male
  Weight: 85 kg

DRUGS (1)
  1. EFUDIX 50 MG/G CREAM [Suspect]
     Active Substance: FLUOROURACIL
     Indication: ACTINIC KERATOSIS
     Dosage: 1 DOSAGE FORM, BID,2 KEER DAAGS 3 WEKEN
     Route: 003
     Dates: start: 20190201, end: 20190225

REACTIONS (2)
  - Glaucoma [Unknown]
  - Intraocular pressure increased [Unknown]
